FAERS Safety Report 24747859 (Version 2)
Quarter: 2024Q4

REPORT INFORMATION
  Report Type: Report from Study
  Country: CN (occurrence: CN)
  Receive Date: 20241218
  Receipt Date: 20241231
  Transmission Date: 20250114
  Serious: Yes (Hospitalization)
  Sender: SANOFI AVENTIS
  Company Number: CN-SA-2024SA317286

PATIENT
  Age: 55 Year
  Sex: Female
  Weight: 49.5 kg

DRUGS (33)
  1. ISATUXIMAB [Suspect]
     Active Substance: ISATUXIMAB
     Indication: Plasma cell myeloma refractory
     Dosage: 600 MG
     Route: 042
     Dates: start: 20230209, end: 20230209
  2. ISATUXIMAB [Suspect]
     Active Substance: ISATUXIMAB
     Dosage: 500 MG
     Route: 042
     Dates: start: 20240827, end: 20240827
  3. ISATUXIMAB [Suspect]
     Active Substance: ISATUXIMAB
     Dosage: 500 MG
     Route: 042
     Dates: start: 20240910, end: 20240910
  4. ISATUXIMAB [Suspect]
     Active Substance: ISATUXIMAB
     Dosage: 500 MG
     Route: 042
     Dates: start: 20240924, end: 20240924
  5. ISATUXIMAB [Suspect]
     Active Substance: ISATUXIMAB
     Dosage: 500 MG
     Route: 042
     Dates: start: 20241008, end: 20241008
  6. ISATUXIMAB [Suspect]
     Active Substance: ISATUXIMAB
     Dosage: 500 MG
     Route: 042
     Dates: start: 20241127, end: 20241127
  7. ISATUXIMAB [Suspect]
     Active Substance: ISATUXIMAB
     Dosage: 500 MG
     Route: 042
     Dates: start: 20241211, end: 20241211
  8. POMALIDOMIDE [Suspect]
     Active Substance: POMALIDOMIDE
     Indication: Plasma cell myeloma refractory
     Dosage: 4 MG, QD
     Route: 048
     Dates: start: 20230209, end: 20230301
  9. POMALIDOMIDE [Suspect]
     Active Substance: POMALIDOMIDE
     Dosage: 2 MG, QD
     Route: 048
     Dates: start: 20240826, end: 20240828
  10. POMALIDOMIDE [Suspect]
     Active Substance: POMALIDOMIDE
     Dosage: 2 MG, QD
     Route: 048
     Dates: start: 20240910, end: 20240923
  11. DEXAMETHASONE [Suspect]
     Active Substance: DEXAMETHASONE
     Indication: Plasma cell myeloma refractory
     Dosage: 40 MG
     Route: 042
     Dates: start: 20230209, end: 20230209
  12. DEXAMETHASONE [Suspect]
     Active Substance: DEXAMETHASONE
     Dosage: 40 MG
     Route: 042
     Dates: start: 20230216, end: 20230216
  13. DEXAMETHASONE [Suspect]
     Active Substance: DEXAMETHASONE
     Dosage: 40 MG
     Route: 042
     Dates: start: 20230223, end: 20230223
  14. DEXAMETHASONE [Suspect]
     Active Substance: DEXAMETHASONE
     Dosage: 40 MG
     Route: 042
     Dates: start: 20230302, end: 20230302
  15. DEXAMETHASONE [Suspect]
     Active Substance: DEXAMETHASONE
     Dosage: 40 MG
     Route: 042
     Dates: start: 20240827, end: 20240827
  16. DEXAMETHASONE [Suspect]
     Active Substance: DEXAMETHASONE
     Dosage: 40 MG
     Route: 048
     Dates: start: 20240903, end: 20240903
  17. DEXAMETHASONE [Suspect]
     Active Substance: DEXAMETHASONE
     Dosage: 40 MG
     Route: 042
     Dates: start: 20240910, end: 20240910
  18. DEXAMETHASONE [Suspect]
     Active Substance: DEXAMETHASONE
     Dosage: 40 MG
     Route: 048
     Dates: start: 20240917, end: 20240917
  19. DEXAMETHASONE [Suspect]
     Active Substance: DEXAMETHASONE
     Dosage: 40 MG
     Route: 042
     Dates: start: 20240924, end: 20240924
  20. DEXAMETHASONE [Suspect]
     Active Substance: DEXAMETHASONE
     Dosage: 40 MG
     Route: 048
     Dates: start: 20241001, end: 20241001
  21. PANTOPRAZOLE SODIUM [Concomitant]
     Active Substance: PANTOPRAZOLE SODIUM
     Indication: Prophylaxis
     Dosage: UNK
     Route: 048
     Dates: start: 20240827, end: 20240827
  22. PANTOPRAZOLE SODIUM [Concomitant]
     Active Substance: PANTOPRAZOLE SODIUM
     Indication: Premedication
     Dosage: UNK
     Route: 048
     Dates: start: 20230309
  23. METFORMIN HYDROCHLORIDE [Concomitant]
     Active Substance: METFORMIN HYDROCHLORIDE
     Dosage: UNK
     Route: 048
     Dates: start: 20240328
  24. ASPIRIN [Concomitant]
     Active Substance: ASPIRIN
  25. POTASSIUM CHLORIDE [Concomitant]
     Active Substance: POTASSIUM CHLORIDE
     Dosage: UNK
     Route: 048
     Dates: start: 20240724, end: 20241029
  26. HUMAN IMMUNOGLOBULIN G [Concomitant]
     Active Substance: HUMAN IMMUNOGLOBULIN G
     Indication: Prophylaxis
     Dosage: UNK
     Route: 041
     Dates: start: 20240821, end: 20240822
  27. POTASSIUM CHLORIDE [Concomitant]
     Active Substance: POTASSIUM CHLORIDE
     Dosage: UNK
     Route: 041
     Dates: start: 20240821, end: 20240823
  28. GRANULOCYTE COLONY-STIMULATING FACTOR NOS [Concomitant]
     Active Substance: GRANULOCYTE COLONY-STIMULATING FACTOR NOS
     Dosage: UNK
     Route: 058
     Dates: start: 20240822, end: 20240824
  29. GRANULOCYTE COLONY-STIMULATING FACTOR NOS [Concomitant]
     Active Substance: GRANULOCYTE COLONY-STIMULATING FACTOR NOS
     Dosage: UNK
     Route: 058
     Dates: start: 20240826, end: 20240826
  30. CALCIUM CARBONATE\CHOLECALCIFEROL [Concomitant]
     Active Substance: CALCIUM CARBONATE\CHOLECALCIFEROL
     Dosage: UNK
     Route: 048
     Dates: start: 20240822, end: 20240823
  31. MONTMORILLONITE [Concomitant]
     Active Substance: MONTMORILLONITE
     Dosage: UNK
     Route: 048
     Dates: start: 20240824, end: 20240825
  32. AVATROMBOPAG [Concomitant]
     Active Substance: AVATROMBOPAG
     Dosage: UNK
     Route: 048
     Dates: start: 20240815, end: 20240902
  33. HETROMBOPAG OLAMINE [Concomitant]
     Active Substance: HETROMBOPAG OLAMINE
     Dosage: UNK
     Route: 048
     Dates: start: 20240827, end: 20240909

REACTIONS (1)
  - Cytomegalovirus chorioretinitis [Not Recovered/Not Resolved]

NARRATIVE: CASE EVENT DATE: 20240906
